FAERS Safety Report 9542887 (Version 2)
Quarter: 2014Q2

REPORT INFORMATION
  Report Type: Spontaneous
  Country: US (occurrence: US)
  Receive Date: 20130923
  Receipt Date: 20140409
  Transmission Date: 20141212
  Serious: Yes (Other)
  Sender: FDA-Public Use
  Company Number: US-PFIZER INC-2013272543

PATIENT
  Age: 29 Year
  Sex: Male
  Weight: 52.15 kg

DRUGS (1)
  1. GABAPENTIN [Suspect]
     Dosage: 300 MG, SINGLE
     Dates: start: 201309, end: 201309

REACTIONS (5)
  - Suicidal ideation [Not Recovered/Not Resolved]
  - Malaise [Not Recovered/Not Resolved]
  - Nausea [Not Recovered/Not Resolved]
  - Urinary incontinence [Not Recovered/Not Resolved]
  - Nervousness [Not Recovered/Not Resolved]
